FAERS Safety Report 16866731 (Version 1)
Quarter: 2019Q4

REPORT INFORMATION
  Report Type: Spontaneous
  Country: US (occurrence: US)
  Receive Date: 20190928
  Receipt Date: 20190928
  Transmission Date: 20200122
  Serious: Yes (Other)
  Sender: FDA-Public Use
  Company Number: None

PATIENT
  Age: 49 Year
  Sex: Female
  Weight: 93.15 kg

DRUGS (5)
  1. RELPAX 40 MG AS NEEDED [Concomitant]
  2. ZOLOFT 50 MG ONE DAILY [Concomitant]
  3. ALBUTEROL NEBULES 2.5/3ML [Concomitant]
  4. SYMBICORT 106/4.5 [Concomitant]
  5. AIMOVIG [Suspect]
     Active Substance: ERENUMAB-AOOE
     Indication: MIGRAINE
     Dosage: ?          OTHER FREQUENCY:MONTHLY;?
     Route: 058
     Dates: start: 20181207, end: 20190928

REACTIONS (2)
  - Injection site pruritus [None]
  - Injection site warmth [None]

NARRATIVE: CASE EVENT DATE: 20190905
